FAERS Safety Report 13838656 (Version 3)
Quarter: 2017Q4

REPORT INFORMATION
  Report Type: Spontaneous
  Country: US (occurrence: US)
  Receive Date: 20170807
  Receipt Date: 20171101
  Transmission Date: 20180320
  Serious: No
  Sender: FDA-Public Use
  Company Number: US-PFIZER INC-2017338528

PATIENT
  Sex: Female

DRUGS (4)
  1. XELJANZ XR [Suspect]
     Active Substance: TOFACITINIB CITRATE
     Dosage: UNK
  2. LEVOFLOXACIN. [Suspect]
     Active Substance: LEVOFLOXACIN
     Dosage: UNK
  3. ELIQUIS [Suspect]
     Active Substance: APIXABAN
     Dosage: UNK
  4. METOPROLOL. [Suspect]
     Active Substance: METOPROLOL
     Dosage: UNK

REACTIONS (17)
  - Oedema peripheral [Unknown]
  - Hand deformity [Unknown]
  - Joint stiffness [Unknown]
  - Joint swelling [Unknown]
  - Spinal disorder [Unknown]
  - Arthralgia [Unknown]
  - Hypokinesia [Unknown]
  - Nodal osteoarthritis [Unknown]
  - Wrist deformity [Unknown]
  - Foot deformity [Unknown]
  - Muscle atrophy [Unknown]
  - Joint crepitation [Unknown]
  - Synovitis [Unknown]
  - Liver function test increased [Unknown]
  - Bursitis [Unknown]
  - Deformity [Unknown]
  - Ankle deformity [Unknown]
